FAERS Safety Report 14004864 (Version 5)
Quarter: 2018Q4

REPORT INFORMATION
  Report Type: Spontaneous
  Country: US (occurrence: US)
  Receive Date: 20170922
  Receipt Date: 20181004
  Transmission Date: 20190204
  Serious: Yes (Other)
  Sender: FDA-Public Use
  Company Number: US-PFIZER INC-2017407316

PATIENT
  Age: 69 Year
  Sex: Female
  Weight: 98.2 kg

DRUGS (3)
  1. IBRANCE [Suspect]
     Active Substance: PALBOCICLIB
     Dosage: 100 MG, CYCLIC [ONCE DAILY (ABOUT THE SAME TIME EACH DAY) WITH FOOD FOR 21 DAYS,THEN OFF FOR 7 DAYS]
     Route: 048
     Dates: start: 20170918
  2. IBRANCE [Suspect]
     Active Substance: PALBOCICLIB
     Indication: BREAST CANCER
     Dosage: 125 MG, CYCLIC (DAILY FOR 21 DAYS ON AND 7 DAYS OFF)
     Route: 048
     Dates: start: 2017, end: 20170916
  3. WARFARIN [Concomitant]
     Active Substance: WARFARIN
     Indication: THROMBOSIS
     Dosage: 2.5 MG, ONCE A DAY
     Dates: end: 20170918

REACTIONS (5)
  - Swelling [Unknown]
  - International normalised ratio increased [Unknown]
  - Neoplasm progression [Unknown]
  - Fluid overload [Unknown]
  - Tumour marker increased [Unknown]

NARRATIVE: CASE EVENT DATE: 20170918
